FAERS Safety Report 7324606-5 (Version None)
Quarter: 2011Q1

REPORT INFORMATION
  Report Type: 
  Country: None (occurrence: None)
  Receive Date: 20110218
  Receipt Date: 20110207
  Transmission Date: 20110831
  Serious: Yes (Other)
  Sender: FDA-Public Use
  Company Number: CIP10002162

PATIENT
  Age: 80 Year
  Sex: Female
  Weight: 77.1 kg

DRUGS (28)
  1. SYNTHROID [Concomitant]
  2. ASPIRIN BUFFERED (ACETYLSALICYLIC ACID) [Concomitant]
  3. MOBIC [Concomitant]
  4. NEOMYCIN [Concomitant]
  5. PROTONIX [Concomitant]
  6. DARVOCET-N (DEXTROPROPOXYPHENE NAPSILATE, PARACETAMOL) [Concomitant]
  7. CIPROFLOXACIN [Concomitant]
  8. ERYTHROMYCIN [Concomitant]
  9. VYTORIN [Concomitant]
  10. CALCIUM (CALCIUM) [Concomitant]
  11. LOTRISONE [Concomitant]
  12. ACIPHEX (RAVEPRAZOLE SODIUM) [Concomitant]
  13. TOPROL-XL [Concomitant]
  14. CENTRUM SILVER /01292501/ (ASCORBIC ACID, CALCIUM, MINERAL NOS, RETINO [Concomitant]
  15. MICONAZOLE (MICONAZOLE) [Concomitant]
  16. OXYBUTYNIN [Concomitant]
  17. LOTERL /01289101/ (AMLODIPINE, BENAZEPRIL HYDROCHLORIDE) [Concomitant]
  18. CELEBREX [Concomitant]
  19. ZOCOR [Concomitant]
  20. CICLOPIROX (CICLOPIROX) [Concomitant]
  21. FOSAMAX [Suspect]
     Indication: OSTEOPOROSIS
     Dosage: 70 MG ONCE WEEKLY, ORAL
     Route: 048
     Dates: start: 20010626, end: 20060101
  22. LOVAZA [Concomitant]
  23. MULTIVITAMINS (ASCORBIC ACID, ERGOCALCIFEROL, FOLIC ACID, NICOTINAMIDE [Concomitant]
  24. ACTONEL [Suspect]
     Dosage: (35 MG ONCE WEEKLY, ORAL) (35 MG ONCE WEEKLY, ORAL)
     Route: 048
     Dates: start: 20061013, end: 20080701
  25. ACTONEL [Suspect]
     Dosage: (35 MG ONCE WEEKLY, ORAL) (35 MG ONCE WEEKLY, ORAL)
     Route: 048
     Dates: start: 20080901
  26. ZOLOFT [Concomitant]
  27. REPLIVA (SUCCINIC ACID) [Concomitant]
  28. VESICARE [Concomitant]

REACTIONS (17)
  - TOOTH ABSCESS [None]
  - IMPAIRED HEALING [None]
  - LOW TURNOVER OSTEOPATHY [None]
  - MUSCULOSKELETAL DISCOMFORT [None]
  - FEMUR FRACTURE [None]
  - FACIAL PAIN [None]
  - CHEST DISCOMFORT [None]
  - STRESS FRACTURE [None]
  - TOOTHACHE [None]
  - PAIN IN JAW [None]
  - DENTAL CARIES [None]
  - GINGIVAL SWELLING [None]
  - MUSCULOSKELETAL PAIN [None]
  - OSTEONECROSIS OF JAW [None]
  - TOOTH FRACTURE [None]
  - GINGIVAL PAIN [None]
  - BONE DISORDER [None]
